FAERS Safety Report 16056918 (Version 1)
Quarter: 2019Q2

REPORT INFORMATION
  Report Type: Spontaneous
  Country: US (occurrence: US)
  Receive Date: 20190311
  Receipt Date: 20190311
  Transmission Date: 20190711
  Serious: Yes (Other)
  Sender: FDA-Public Use
  Company Number: None

PATIENT
  Age: 68 Year
  Sex: Female
  Weight: 146.25 kg

DRUGS (22)
  1. PROBIOTIC CAPSULE [Concomitant]
  2. FERROUS SULFATE. [Concomitant]
     Active Substance: FERROUS SULFATE
  3. JANUVIA [Concomitant]
     Active Substance: SITAGLIPTIN PHOSPHATE
  4. BD PEN NEEDLE NANO 32G X 4MM [Concomitant]
  5. ONE TOUCH ULTRA BLUE STRIP [Concomitant]
  6. BELVIQ [Suspect]
     Active Substance: LORCASERIN HYDROCHLORIDE
     Indication: WEIGHT INCREASED
     Dosage: ?          QUANTITY:1 TABLET(S);?
     Route: 048
     Dates: start: 20190223, end: 20190306
  7. SYNTHROID [Concomitant]
     Active Substance: LEVOTHYROXINE SODIUM
  8. CELEBREX [Concomitant]
     Active Substance: CELECOXIB
  9. LOSARTAN POTASSIUM. [Concomitant]
     Active Substance: LOSARTAN POTASSIUM
  10. OMEGA 6 [Concomitant]
  11. SPIRIVA [Concomitant]
     Active Substance: TIOTROPIUM BROMIDE MONOHYDRATE
  12. VITAMIN D NOS [Concomitant]
     Active Substance: VITAMIN D NOS
  13. COENZYME Q10 [Concomitant]
     Active Substance: UBIDECARENONE
  14. WARFARIN [Concomitant]
     Active Substance: WARFARIN
  15. METFORMIN [Concomitant]
     Active Substance: METFORMIN HYDROCHLORIDE
  16. OMEGA 3 [Concomitant]
     Active Substance: OMEGA-3 FATTY ACIDS
  17. VICTOZA [Concomitant]
     Active Substance: LIRAGLUTIDE
  18. TYLENOL [Concomitant]
     Active Substance: ACETAMINOPHEN
  19. SPIRONOLACTONE. [Concomitant]
     Active Substance: SPIRONOLACTONE
  20. LATANAPROST [Concomitant]
     Active Substance: LATANOPROST
  21. MULTIVITAMIN [Concomitant]
     Active Substance: VITAMINS
  22. VITAMIN B [Concomitant]
     Active Substance: VITAMIN B

REACTIONS (6)
  - Blood glucose increased [None]
  - Body temperature decreased [None]
  - Condition aggravated [None]
  - Pulmonary congestion [None]
  - Chills [None]
  - Weight increased [None]

NARRATIVE: CASE EVENT DATE: 20190302
